FAERS Safety Report 4717579-2 (Version None)
Quarter: 2005Q3

REPORT INFORMATION
  Report Type: 
  Country: None (occurrence: None)
  Receive Date: 20050712
  Receipt Date: 20050606
  Transmission Date: 20060218
  Serious: No
  Sender: FDA-Public Use
  Company Number: 2005S1000111

PATIENT
  Age: 58 Year
  Sex: Male

DRUGS (2)
  1. CUBICIN [Suspect]
     Dosage: IV
     Route: 042
  2. LIPITOR [Concomitant]

REACTIONS (1)
  - BLOOD CREATINE PHOSPHOKINASE INCREASED [None]
